FAERS Safety Report 12518523 (Version 1)
Quarter: 2016Q2

REPORT INFORMATION
  Report Type: Spontaneous
  Country: US (occurrence: US)
  Receive Date: 20160630
  Receipt Date: 20160630
  Transmission Date: 20160815
  Serious: Yes (Hospitalization, Other)
  Sender: FDA-Public Use
  Company Number: US-PFIZER INC-2016316192

PATIENT
  Age: 49 Year
  Sex: Male

DRUGS (14)
  1. METHOTREXATE [Concomitant]
     Active Substance: METHOTREXATE
  2. TIZANIDINE. [Concomitant]
     Active Substance: TIZANIDINE
  3. XELJANZ [Suspect]
     Active Substance: TOFACITINIB CITRATE
     Indication: RHEUMATOID ARTHRITIS
     Dosage: 5 MG, 2X/DAY
     Route: 048
  4. VOLTAREN [Concomitant]
     Active Substance: DICLOFENAC SODIUM
  5. OXYCODONE [Concomitant]
     Active Substance: OXYCODONE
  6. RANITIDINE. [Concomitant]
     Active Substance: RANITIDINE
  7. GABAPENTIN. [Concomitant]
     Active Substance: GABAPENTIN
     Dosage: UNK
  8. GLYBURIDE AND METFORMIN HCL [Concomitant]
     Dosage: UNK
  9. XANAX [Concomitant]
     Active Substance: ALPRAZOLAM
  10. ATORVASTATIN [Concomitant]
     Active Substance: ATORVASTATIN
     Dosage: UNK
  11. MOBIC [Concomitant]
     Active Substance: MELOXICAM
  12. PREDNISONE. [Concomitant]
     Active Substance: PREDNISONE
  13. OMEPRAZOLE. [Concomitant]
     Active Substance: OMEPRAZOLE
  14. VITAMIN D3 [Concomitant]
     Active Substance: CHOLECALCIFEROL

REACTIONS (5)
  - Peripheral artery occlusion [Recovering/Resolving]
  - Peripheral swelling [Unknown]
  - Limb injury [Unknown]
  - Nasal congestion [Unknown]
  - Myocardial infarction [Unknown]

NARRATIVE: CASE EVENT DATE: 201507
